FAERS Safety Report 24448874 (Version 2)
Quarter: 2024Q4

REPORT INFORMATION
  Report Type: Spontaneous
  Country: US (occurrence: US)
  Receive Date: 20241017
  Receipt Date: 20241018
  Transmission Date: 20250115
  Serious: Yes (Other)
  Sender: RANBAXY
  Company Number: US-SUN PHARMACEUTICAL INDUSTRIES LTD-2024R1-470784

PATIENT
  Sex: Male

DRUGS (2)
  1. ILUMYA [Suspect]
     Active Substance: TILDRAKIZUMAB-ASMN
     Indication: Psoriasis
     Dosage: UNK (100 MG/ML,AT WEEK 0, WEEK 4, THEN EVERY 12 WEEKS THEREAFTER)
     Route: 065
     Dates: start: 20240618
  2. ILUMYA [Suspect]
     Active Substance: TILDRAKIZUMAB-ASMN
     Dosage: UNK (100 MG/ML,AT WEEK 0, WEEK 4, THEN EVERY 12 WEEKS THEREAFTER)
     Route: 065
     Dates: start: 20240716

REACTIONS (2)
  - Haematological infection [Unknown]
  - Arthritis infective [Unknown]
